FAERS Safety Report 9247588 (Version 1)
Quarter: 2013Q2

REPORT INFORMATION
  Report Type: Spontaneous
  Country: GB (occurrence: None)
  Receive Date: 20130419
  Receipt Date: 20130419
  Transmission Date: 20140414
  Serious: Yes (Death, Life-Threatening, Disabling)
  Sender: FDA-Public Use
  Company Number: None

PATIENT
  Age: 8 Year
  Sex: Female

DRUGS (2)
  1. PREGABALIN [Suspect]
     Indication: NEURALGIA
     Route: 048
     Dates: start: 20020101, end: 20080730
  2. PREGABALIN [Suspect]
     Indication: OFF LABEL USE
     Route: 048
     Dates: start: 20020101, end: 20080730

REACTIONS (4)
  - Blindness [None]
  - Completed suicide [None]
  - Anxiety [None]
  - Suicidal ideation [None]
